FAERS Safety Report 8197982-1 (Version None)
Quarter: 2012Q1

REPORT INFORMATION
  Report Type: 
  Country: None (occurrence: None)
  Receive Date: 20120309
  Receipt Date: 20111222
  Transmission Date: 20120608
  Serious: No
  Sender: FDA-Public Use
  Company Number: US-AMGEN-USASP2012000346

PATIENT
  Sex: Female

DRUGS (2)
  1. XGEVA [Suspect]
     Indication: BREAST CANCER METASTATIC
     Dosage: 120 MG, Q4WK
     Dates: start: 20111201
  2. LORTAB [Concomitant]

REACTIONS (3)
  - PELVIC PAIN [None]
  - ARTHRALGIA [None]
  - BONE PAIN [None]
